FAERS Safety Report 14589644 (Version 1)
Quarter: 2018Q1

REPORT INFORMATION
  Report Type: Spontaneous
  Country: RU (occurrence: RU)
  Receive Date: 20180302
  Receipt Date: 20180302
  Transmission Date: 20180509
  Serious: Yes (Hospitalization, Other)
  Sender: FDA-Public Use
  Company Number: RU-ASTRAZENECA-2018SE23493

PATIENT
  Age: 50 Year
  Sex: Female
  Weight: 81 kg

DRUGS (1)
  1. FORXIGA [Suspect]
     Active Substance: DAPAGLIFLOZIN
     Indication: TYPE 2 DIABETES MELLITUS
     Route: 048

REACTIONS (8)
  - Blood glucose increased [Unknown]
  - Atrophy [Unknown]
  - Ketonuria [Unknown]
  - Pulmonary contusion [Unknown]
  - Blindness [Unknown]
  - Pyrexia [Unknown]
  - Coma [Unknown]
  - Brain oedema [Unknown]

NARRATIVE: CASE EVENT DATE: 20170928
